FAERS Safety Report 4986849-5 (Version None)
Quarter: 2006Q2

REPORT INFORMATION
  Report Type: 
  Country: None (occurrence: None)
  Receive Date: 20060428
  Receipt Date: 20060203
  Transmission Date: 20061013
  Serious: Yes (Hospitalization)
  Sender: FDA-Public Use
  Company Number: CA-ABBOTT-06P-028-0324368-00

PATIENT
  Sex: Female
  Weight: 72.64 kg

DRUGS (3)
  1. HUMIRA [Suspect]
     Indication: RHEUMATOID ARTHRITIS
     Route: 058
     Dates: start: 20041027, end: 20060124
  2. HUMIRA [Suspect]
     Route: 058
     Dates: start: 20060406
  3. ESTROGENS [Concomitant]
     Indication: ARTIFICIAL MENOPAUSE

REACTIONS (1)
  - OVARIAN MASS [None]
